FAERS Safety Report 12896314 (Version 1)
Quarter: 2016Q4

REPORT INFORMATION
  Report Type: Spontaneous
  Country: US (occurrence: US)
  Receive Date: 20161031
  Receipt Date: 20161031
  Transmission Date: 20170207
  Serious: No
  Sender: FDA-Public Use
  Company Number: US-JAZZ-2016-US-016402

PATIENT
  Sex: Female

DRUGS (26)
  1. VITAMIN D3 [Concomitant]
     Active Substance: CHOLECALCIFEROL
  2. FUROSEMIDE. [Concomitant]
     Active Substance: FUROSEMIDE
  3. PROAIR HFA [Concomitant]
     Active Substance: ALBUTEROL SULFATE
  4. ESTRADIOL. [Concomitant]
     Active Substance: ESTRADIOL
  5. LOSARTAN. [Concomitant]
     Active Substance: LOSARTAN
  6. XYREM [Suspect]
     Active Substance: SODIUM OXYBATE
     Indication: NARCOLEPSY
     Dosage: 2.25 G, BID
     Route: 048
     Dates: start: 201311, end: 201312
  7. ESOMEPRAZOLE MAGNESIUM. [Concomitant]
     Active Substance: ESOMEPRAZOLE MAGNESIUM
  8. LEVOTHYROXINE. [Concomitant]
     Active Substance: LEVOTHYROXINE
  9. IBUPROFEN. [Concomitant]
     Active Substance: IBUPROFEN
  10. SYNTHROID [Concomitant]
     Active Substance: LEVOTHYROXINE SODIUM
  11. LOSARTAN AND HYDROCHLOROTHIAZIDE [Concomitant]
     Active Substance: HYDROCHLOROTHIAZIDE\LOSARTAN POTASSIUM
  12. NEXIUM [Concomitant]
     Active Substance: ESOMEPRAZOLE MAGNESIUM
  13. ALBUTEROL SULFATE. [Concomitant]
     Active Substance: ALBUTEROL SULFATE
  14. XYREM [Suspect]
     Active Substance: SODIUM OXYBATE
     Dosage: 3.75 G, BID
     Route: 048
     Dates: start: 201510
  15. NUVIGIL [Concomitant]
     Active Substance: ARMODAFINIL
  16. OIL [Concomitant]
     Active Substance: MINERAL OIL
  17. CLOTRIMAZOLE AND BETAMETHASONE [Concomitant]
     Active Substance: BETAMETHASONE\CLOTRIMAZOLE
  18. ZYRTEC [Concomitant]
     Active Substance: CETIRIZINE HYDROCHLORIDE
  19. XYREM [Suspect]
     Active Substance: SODIUM OXYBATE
     Dosage: 3 G, BID
     Route: 048
     Dates: start: 201312, end: 201510
  20. VITAMIN B12 [Concomitant]
     Active Substance: CYANOCOBALAMIN
  21. PULMICORT TURBUHALER [Concomitant]
     Active Substance: BUDESONIDE
  22. HYZAAR [Concomitant]
     Active Substance: HYDROCHLOROTHIAZIDE\LOSARTAN POTASSIUM
  23. LOTRISONE [Concomitant]
     Active Substance: BETAMETHASONE DIPROPIONATE\CLOTRIMAZOLE
  24. NIACIN. [Concomitant]
     Active Substance: NIACIN
  25. BIOTIN [Concomitant]
     Active Substance: BIOTIN
  26. POTASSIUM CL [Concomitant]
     Active Substance: POTASSIUM CHLORIDE

REACTIONS (1)
  - Nausea [Not Recovered/Not Resolved]
